FAERS Safety Report 19944661 (Version 1)
Quarter: 2021Q4

REPORT INFORMATION
  Report Type: Spontaneous
  Country: DE (occurrence: DE)
  Receive Date: 20211012
  Receipt Date: 20211012
  Transmission Date: 20220303
  Serious: Yes (Congenital Anomaly, Other)
  Sender: FDA-Public Use
  Company Number: DE-EMBRYOTOX-202003359

PATIENT
  Age: 0 Year
  Sex: Male
  Weight: 2.87 kg

DRUGS (2)
  1. LEVETIRACETAM [Suspect]
     Active Substance: LEVETIRACETAM
     Indication: Epilepsy
     Dosage: 2 SEPARATED DOSES; 0.- 21.3. GESTATIONAL WEEK
     Route: 064
     Dates: start: 20191015, end: 20200313
  2. FOLIC ACID [Concomitant]
     Active Substance: FOLIC ACID
     Indication: Prophylaxis of neural tube defect
     Dosage: 0. - 36.2. GESTATIONAL WEEK
     Route: 064
     Dates: start: 20191015, end: 20200625

REACTIONS (2)
  - Foetal exposure during pregnancy [Unknown]
  - Limb reduction defect [Not Recovered/Not Resolved]
